FAERS Safety Report 17847774 (Version 3)
Quarter: 2020Q2

REPORT INFORMATION
  Report Type: Report from Study
  Country: GB (occurrence: GB)
  Receive Date: 20200601
  Receipt Date: 20200615
  Transmission Date: 20200714
  Serious: Yes (Hospitalization, Other)
  Sender: FDA-Public Use
  Company Number: GB-NOVOPROD-730228

PATIENT
  Age: 66 Year
  Sex: Female
  Weight: 103 kg

DRUGS (1)
  1. SEMAGLUTIDE B 3.0 MG/ML PDS290 [Suspect]
     Active Substance: SEMAGLUTIDE
     Indication: OBESITY
     Dosage: 1 MG, QW
     Route: 058
     Dates: start: 20191021, end: 20200413

REACTIONS (3)
  - Gallbladder rupture [Not Recovered/Not Resolved]
  - Cholecystitis [Not Recovered/Not Resolved]
  - Liver abscess [Not Recovered/Not Resolved]

NARRATIVE: CASE EVENT DATE: 20200512
